FAERS Safety Report 6020351-7 (Version None)
Quarter: 2008Q4

REPORT INFORMATION
  Report Type: 
  Country: None (occurrence: None)
  Receive Date: 20081223
  Receipt Date: 20081223
  Transmission Date: 20090506
  Serious: Yes (Hospitalization)
  Sender: FDA-Public Use
  Company Number: None

PATIENT
  Age: 62 Year
  Sex: Male

DRUGS (3)
  1. SORAFENIB [Suspect]
     Indication: HEPATIC NEOPLASM MALIGNANT
     Dosage: 200 MG BID PO
     Route: 048
     Dates: start: 20081206, end: 20081208
  2. PIPERACILLIN AND TAZOBACTAM [Suspect]
     Indication: UPPER RESPIRATORY TRACT INFECTION
     Dosage: 2.25 GM QID IV
     Route: 042
     Dates: start: 20081206, end: 20081208
  3. PIPERACILLIN AND TAZOBACTAM [Suspect]
     Indication: URINARY TRACT INFECTION
     Dosage: 2.25 GM QID IV
     Route: 042
     Dates: start: 20081206, end: 20081208

REACTIONS (1)
  - THROMBOCYTOPENIA [None]
